FAERS Safety Report 21165033 (Version 3)
Quarter: 2023Q2

REPORT INFORMATION
  Report Type: Spontaneous
  Country: CA (occurrence: CA)
  Receive Date: 20220803
  Receipt Date: 20230428
  Transmission Date: 20230721
  Serious: Yes (Hospitalization, Other)
  Sender: FDA-Public Use
  Company Number: CA-AUROBINDO-AUR-APL-2022-029499

PATIENT
  Age: 63 Year
  Sex: Female

DRUGS (11)
  1. MOXIFLOXACIN [Suspect]
     Active Substance: MOXIFLOXACIN
     Indication: Product used for unknown indication
     Dosage: UNK
     Route: 065
  2. CORTISONE [Suspect]
     Active Substance: CORTISONE
     Indication: Asthma
     Dosage: UNK
     Route: 065
  3. COVID-19 VACCINE NOS [Suspect]
     Active Substance: COVID-19 VACCINE NOS
     Indication: COVID-19 prophylaxis
     Dosage: UNK, TOTAL
     Route: 065
  4. COVID-19 VACCINE NOS [Suspect]
     Active Substance: COVID-19 VACCINE NOS
     Indication: COVID-19 immunisation
  5. MEPOLIZUMAB [Suspect]
     Active Substance: MEPOLIZUMAB
     Indication: Asthma
     Dosage: 100 MILLIGRAM
     Route: 058
  6. BREO ELLIPTA [Concomitant]
     Active Substance: FLUTICASONE FUROATE\VILANTEROL TRIFENATATE
     Indication: Product used for unknown indication
     Dosage: 1 DOSAGE FORM, ONCE A DAY
  7. UMECLIDINIUM BROMIDE [Concomitant]
     Active Substance: UMECLIDINIUM BROMIDE
     Indication: Product used for unknown indication
     Dosage: 1 DOSAGE FORM, ONCE A DAY
  8. UNIPHYL [Concomitant]
     Active Substance: THEOPHYLLINE ANHYDROUS
     Indication: Product used for unknown indication
     Dosage: 400 MICROGRAM, ONCE A DAY
     Route: 048
  9. VENTOLIN [Concomitant]
     Active Substance: ALBUTEROL SULFATE
     Indication: Product used for unknown indication
     Dosage: 2 DOSAGE FORM
  10. ACETYLCYSTEINE [Concomitant]
     Active Substance: ACETYLCYSTEINE
     Indication: Product used for unknown indication
     Dosage: 200 DOSAGE FORM
     Route: 065
  11. ALVESCO [Concomitant]
     Active Substance: CICLESONIDE
     Indication: Product used for unknown indication
     Dosage: 200 MICROGRAM, TWO TIMES A DAY
     Route: 065

REACTIONS (19)
  - Cough [Not Recovered/Not Resolved]
  - Crepitations [Not Recovered/Not Resolved]
  - Drug hypersensitivity [Not Recovered/Not Resolved]
  - Dyspnoea exertional [Not Recovered/Not Resolved]
  - Dyspnoea [Not Recovered/Not Resolved]
  - Hot flush [Not Recovered/Not Resolved]
  - Injection site haemorrhage [Not Recovered/Not Resolved]
  - Injection site pain [Not Recovered/Not Resolved]
  - Lumbar vertebral fracture [Not Recovered/Not Resolved]
  - Nausea [Not Recovered/Not Resolved]
  - Osteoporosis [Not Recovered/Not Resolved]
  - Oxygen saturation abnormal [Not Recovered/Not Resolved]
  - Pneumonia [Not Recovered/Not Resolved]
  - Rales [Not Recovered/Not Resolved]
  - Sneezing [Not Recovered/Not Resolved]
  - Sputum discoloured [Not Recovered/Not Resolved]
  - Wheezing [Not Recovered/Not Resolved]
  - Vaccination site haemorrhage [Not Recovered/Not Resolved]
  - Vaccination site pain [Not Recovered/Not Resolved]
